FAERS Safety Report 7231117-4 (Version None)
Quarter: 2011Q1

REPORT INFORMATION
  Report Type: 
  Country: None (occurrence: None)
  Receive Date: 20110118
  Receipt Date: 20110110
  Transmission Date: 20110831
  Serious: Yes (Other)
  Sender: FDA-Public Use
  Company Number: US-TEVA-262662USA

PATIENT

DRUGS (2)
  1. INFLIXIMAB [Suspect]
  2. MERCAPTOPURINE [Suspect]

REACTIONS (1)
  - HISTOPLASMOSIS [None]
